FAERS Safety Report 6025943-7 (Version None)
Quarter: 2008Q4

REPORT INFORMATION
  Report Type: 
  Country: None (occurrence: None)
  Receive Date: 20081230
  Receipt Date: 20081218
  Transmission Date: 20090506
  Serious: Yes (Life-Threatening, Hospitalization)
  Sender: FDA-Public Use
  Company Number: 20085987

PATIENT
  Sex: Male

DRUGS (1)
  1. LIORESAL [Suspect]
     Indication: MUSCLE SPASTICITY
     Dosage: 855 MCG, DAILY, INTRATHECAL
     Route: 037

REACTIONS (8)
  - AUTONOMIC DYSREFLEXIA [None]
  - HYPERTENSION [None]
  - MUSCLE SPASMS [None]
  - PURULENT DISCHARGE [None]
  - RESPIRATORY DISTRESS [None]
  - WITHDRAWAL SYNDROME [None]
  - WOUND DEHISCENCE [None]
  - WOUND INFECTION [None]
